FAERS Safety Report 6717683-3 (Version None)
Quarter: 2010Q2

REPORT INFORMATION
  Report Type: 
  Country: None (occurrence: None)
  Receive Date: 20100507
  Receipt Date: 20100507
  Transmission Date: 20101027
  Serious: Yes (Other)
  Sender: FDA-Public Use
  Company Number: None

PATIENT
  Age: 69 Year
  Sex: Female
  Weight: 56.6996 kg

DRUGS (3)
  1. DICLOFENAC SODIUM [Suspect]
     Indication: ARTHRALGIA
     Dosage: 1 TWICE A DAY PO
     Route: 048
     Dates: start: 20100428, end: 20100429
  2. DICLOFENAC SODIUM [Suspect]
     Indication: BACK PAIN
     Dosage: 1 TWICE A DAY PO
     Route: 048
     Dates: start: 20100428, end: 20100429
  3. DICLOFENAC SODIUM [Suspect]
     Indication: JOINT STIFFNESS
     Dosage: 1 TWICE A DAY PO
     Route: 048
     Dates: start: 20100428, end: 20100429

REACTIONS (2)
  - PRURITUS [None]
  - RASH ERYTHEMATOUS [None]
